FAERS Safety Report 8013950-4 (Version None)
Quarter: 2011Q4

REPORT INFORMATION
  Report Type: 
  Country: None (occurrence: None)
  Receive Date: 20111229
  Receipt Date: 20111215
  Transmission Date: 20120403
  Serious: Yes (Hospitalization)
  Sender: FDA-Public Use
  Company Number: JP-ROCHE-1024151

PATIENT
  Sex: Female
  Weight: 54 kg

DRUGS (11)
  1. LANSOPRAZOLE [Suspect]
     Indication: GASTROOESOPHAGEAL REFLUX DISEASE
     Route: 048
     Dates: start: 20091109
  2. ACTEMRA [Suspect]
     Route: 042
  3. PREDNISOLONE [Suspect]
     Indication: RHEUMATOID ARTHRITIS
     Route: 048
     Dates: start: 20100417
  4. ALENDRONATE SODIUM [Suspect]
     Indication: OSTEOPOROSIS
     Route: 048
     Dates: start: 20090101
  5. FERRIC PYROPHOSPHATE [Suspect]
     Indication: IRON DEFICIENCY ANAEMIA
  6. HERBAL,HOMEOPATHIC,+ DIETARY SUPPLEMENTS [Suspect]
     Indication: RHEUMATOID ARTHRITIS
     Route: 048
     Dates: start: 20111014
  7. ACTEMRA [Suspect]
  8. DICLOFENAC SODIUM [Suspect]
     Indication: RHEUMATOID ARTHRITIS
     Route: 061
     Dates: start: 20111014
  9. ACTEMRA [Suspect]
     Indication: RHEUMATOID ARTHRITIS
  10. ACTEMRA [Suspect]
     Indication: RHEUMATOID ARTHRITIS
     Route: 058
     Dates: start: 20110307, end: 20111125
  11. ATORVASTATIN CALCIUM [Suspect]
     Indication: HYPERCHOLESTEROLAEMIA
     Route: 048
     Dates: start: 20111001

REACTIONS (1)
  - OVARIAN NEOPLASM [None]
